FAERS Safety Report 7939890-4 (Version None)
Quarter: 2011Q4

REPORT INFORMATION
  Report Type: 
  Country: None (occurrence: None)
  Receive Date: 20111125
  Receipt Date: 20110913
  Transmission Date: 20120403
  Serious: No
  Sender: FDA-Public Use
  Company Number: US-BAYER-2011-090669

PATIENT
  Age: 92 Year
  Sex: Female

DRUGS (4)
  1. ALEVE (CAPLET) [Suspect]
     Indication: SCIATICA
  2. BENAZEPRIL HYDROCHLORIDE [Concomitant]
  3. ASPIRIN [Concomitant]
  4. ALEVE (CAPLET) [Suspect]
     Indication: ANALGESIC THERAPY
     Dosage: 1 DF, ONCE, BOTTLE COUNT 24S
     Route: 048
     Dates: start: 20110913, end: 20110913

REACTIONS (1)
  - SCIATICA [None]
